FAERS Safety Report 10240515 (Version 2)
Quarter: 2014Q3

REPORT INFORMATION
  Report Type: Spontaneous
  Country: US (occurrence: US)
  Receive Date: 20140617
  Receipt Date: 20140819
  Transmission Date: 20150326
  Serious: Yes (Other)
  Sender: FDA-Public Use
  Company Number: US-AMGEN-USASP2014044012

PATIENT
  Age: 73 Year
  Sex: Female
  Weight: 65.08 kg

DRUGS (1)
  1. PROLIA [Suspect]
     Active Substance: DENOSUMAB
     Indication: OSTEOPOROSIS POSTMENOPAUSAL
     Dosage: 60 MG, Q6MO
     Route: 058
     Dates: start: 20131220, end: 20140528

REACTIONS (5)
  - Polymyalgia rheumatica [Recovering/Resolving]
  - Red blood cell sedimentation rate increased [Unknown]
  - Burning sensation [Not Recovered/Not Resolved]
  - Asthenia [Recovering/Resolving]
  - Pain in extremity [Not Recovered/Not Resolved]

NARRATIVE: CASE EVENT DATE: 201404
